FAERS Safety Report 12290619 (Version 5)
Quarter: 2016Q3

REPORT INFORMATION
  Report Type: Report from Study
  Country: CO (occurrence: CO)
  Receive Date: 20160421
  Receipt Date: 20160714
  Transmission Date: 20161109
  Serious: Yes (Death, Hospitalization, Other)
  Sender: FDA-Public Use
  Company Number: CO-INCYTE CORPORATION-2016IN000558

PATIENT
  Age: 50 Year
  Sex: Female
  Weight: 52 kg

DRUGS (4)
  1. JAKAFI [Suspect]
     Active Substance: RUXOLITINIB
     Indication: PRIMARY MYELOFIBROSIS
     Dosage: 5 MG, QID
     Route: 048
     Dates: start: 20140408
  2. EPOETIN BETA [Concomitant]
     Active Substance: ERYTHROPOIETIN
     Indication: PRODUCT USED FOR UNKNOWN INDICATION
     Route: 065
  3. JAKAFI [Suspect]
     Active Substance: RUXOLITINIB
     Dosage: 4 DF, QD
     Route: 048
     Dates: start: 20151228
  4. JAKAFI [Suspect]
     Active Substance: RUXOLITINIB
     Dosage: 2 DF, BID
     Route: 048

REACTIONS (12)
  - Death [Fatal]
  - Gastritis [Unknown]
  - Primary myelofibrosis [Unknown]
  - Diarrhoea [Unknown]
  - Oedema [Unknown]
  - Decreased appetite [Unknown]
  - Weight decreased [Unknown]
  - Tachycardia [Unknown]
  - Fluid retention [Unknown]
  - Disease recurrence [Unknown]
  - Vaginal haemorrhage [Unknown]
  - Abdominal pain upper [Unknown]

NARRATIVE: CASE EVENT DATE: 201510
